FAERS Safety Report 6095999-4 (Version None)
Quarter: 2009Q1

REPORT INFORMATION
  Report Type: 
  Country: None (occurrence: None)
  Receive Date: 20090227
  Receipt Date: 20080828
  Transmission Date: 20090719
  Serious: No
  Sender: FDA-Public Use
  Company Number: A0740942A

PATIENT
  Age: 40 Year
  Sex: Female

DRUGS (4)
  1. LAMICTAL [Suspect]
     Indication: BIPOLAR DISORDER
     Dosage: 100MG PER DAY
     Route: 048
     Dates: start: 20080602, end: 20080609
  2. GEODON [Concomitant]
  3. EFFEXOR XR [Concomitant]
  4. TOPAMAX [Concomitant]

REACTIONS (1)
  - PHOTODERMATOSIS [None]
